FAERS Safety Report 22284411 (Version 1)
Quarter: 2023Q2

REPORT INFORMATION
  Report Type: Spontaneous
  Country: CN (occurrence: None)
  Receive Date: 20230504
  Receipt Date: 20230504
  Transmission Date: 20230722
  Serious: Yes (Other)
  Sender: FDA-Public Use
  Company Number: 2023A100481

PATIENT
  Sex: Female

DRUGS (1)
  1. TAGRISSO [Suspect]
     Active Substance: OSIMERTINIB
     Indication: Lung neoplasm malignant
     Route: 048

REACTIONS (6)
  - Corneal infection [Unknown]
  - Eye swelling [Unknown]
  - Pain [Unknown]
  - Dermatitis [Unknown]
  - Rash [Unknown]
  - Skin fissures [Unknown]
